FAERS Safety Report 6707260-2 (Version None)
Quarter: 2010Q2

REPORT INFORMATION
  Report Type: 
  Country: None (occurrence: None)
  Receive Date: 20100503
  Receipt Date: 20090305
  Transmission Date: 20101027
  Serious: No
  Sender: FDA-Public Use
  Company Number: US-ASTRAZENECA-2009UW05911

PATIENT
  Sex: Female
  Weight: 89.4 kg

DRUGS (2)
  1. NEXIUM [Suspect]
     Route: 048
     Dates: start: 20090212, end: 20090226
  2. CHLORTHALIDE [Concomitant]
     Indication: GASTROOESOPHAGEAL REFLUX DISEASE

REACTIONS (3)
  - CARDIAC FLUTTER [None]
  - ERUCTATION [None]
  - FLATULENCE [None]
